FAERS Safety Report 8978238 (Version 2)
Quarter: 2013Q1

REPORT INFORMATION
  Report Type: Spontaneous
  Country: US (occurrence: US)
  Receive Date: 20121221
  Receipt Date: 20130219
  Transmission Date: 20140127
  Serious: Yes (Other)
  Sender: FDA-Public Use
  Company Number: US-PFIZER INC-2012320439

PATIENT
  Age: 50 Year
  Sex: Female

DRUGS (3)
  1. PREMPRO [Suspect]
     Indication: MENOPAUSAL SYMPTOMS
     Dosage: 0.3MG/ 1.5MG, 1X/DAY
     Route: 048
  2. PREMPRO [Suspect]
     Indication: HOT FLUSH
  3. PRAVACHOL [Concomitant]
     Indication: BLOOD CHOLESTEROL INCREASED
     Dosage: 20 MG, UNK

REACTIONS (4)
  - Cardiac disorder [Unknown]
  - Oedema [Unknown]
  - Fluid retention [Unknown]
  - Asthenia [Unknown]
